FAERS Safety Report 18145126 (Version 7)
Quarter: 2022Q2

REPORT INFORMATION
  Report Type: Spontaneous
  Country: US (occurrence: US)
  Receive Date: 20200813
  Receipt Date: 20220427
  Transmission Date: 20220721
  Serious: No
  Sender: FDA-Public Use
  Company Number: US-PFIZER INC-2020286595

PATIENT
  Age: 89 Year
  Sex: Female

DRUGS (2)
  1. EUCRISA [Suspect]
     Active Substance: CRISABOROLE
     Indication: Eczema
     Dosage: UNK, TO APPLY THIN LAYER TO ARMS TWICE A DAY (BID)
     Route: 061
  2. EUCRISA [Suspect]
     Active Substance: CRISABOROLE
     Indication: Rash
     Dosage: UNK, TO APPLY TO RASH/ECZEMA ON TRUNK AND EXTREMITIES TWICE DAILY AS NEEDED
     Route: 061

REACTIONS (4)
  - Therapeutic product effect incomplete [Unknown]
  - Intentional product misuse [Unknown]
  - Pain in extremity [Unknown]
  - Back pain [Unknown]
